FAERS Safety Report 25007685 (Version 1)
Quarter: 2025Q1

REPORT INFORMATION
  Report Type: Spontaneous
  Country: DE (occurrence: DE)
  Receive Date: 20250225
  Receipt Date: 20250225
  Transmission Date: 20250408
  Serious: Yes (Hospitalization, Other)
  Sender: BRISTOL-MYERS SQUIBB COMPANY
  Company Number: DE-EMB-M202403517-1

PATIENT
  Sex: Female
  Weight: 98 kg

DRUGS (4)
  1. ORENCIA [Suspect]
     Active Substance: ABATACEPT
     Indication: Rheumatoid arthritis
     Dosage: STOPPED IN GW 1
     Route: 042
     Dates: start: 202403, end: 202403
  2. SULFASALAZINE [Suspect]
     Active Substance: SULFASALAZINE
     Indication: Rheumatoid arthritis
     Dosage: PROBABLY CONTINUED UNTIL THE END OF PREGNANCY
     Route: 048
     Dates: start: 202403, end: 202404
  3. Folsaure Stada [Concomitant]
     Indication: Prophylaxis of neural tube defect
     Dosage: PROBABLY LONGER APPLIED
     Route: 048
     Dates: start: 202403, end: 202404
  4. REMICADE [Concomitant]
     Active Substance: INFLIXIMAB
     Indication: Rheumatoid arthritis
     Route: 042

REACTIONS (3)
  - Abortion missed [Unknown]
  - Maternal exposure during pregnancy [Recovered/Resolved]
  - Off label use [Unknown]
